FAERS Safety Report 16412487 (Version 1)
Quarter: 2019Q2

REPORT INFORMATION
  Report Type: Spontaneous
  Country: BR (occurrence: BR)
  Receive Date: 20190610
  Receipt Date: 20190610
  Transmission Date: 20190711
  Serious: Yes (Other)
  Sender: FDA-Public Use
  Company Number: BR-BAXTER-2019BAX004109

PATIENT
  Age: 48 Year
  Sex: Female
  Weight: 99 kg

DRUGS (3)
  1. RED BLOOD CELLS [Concomitant]
     Active Substance: HUMAN RED BLOOD CELL
     Indication: IRON DEFICIENCY ANAEMIA
     Dosage: 02 RED BLOOD CELLS TRANSFUSIONS
     Route: 042
     Dates: start: 20190217
  2. CLORETO DE S?DIO - BAXTER [Suspect]
     Active Substance: SODIUM CHLORIDE
     Indication: MEDICATION DILUTION
     Dosage: SINGLE DOSE, VIA ENDOVENOUS ROUTE 30 MINUTES FOR INFUSION
     Route: 042
     Dates: start: 20190219, end: 20190219
  3. SUCROFER [ELEMENTAL IRON] [Suspect]
     Active Substance: IRON
     Indication: IRON DEFICIENCY ANAEMIA
     Dosage: JUST A SINGLE DOSE WAS ADMINISTERED, VIA ENDOVENOUS ROUTE?30 MINUTES FOR INFUSION
     Route: 042
     Dates: start: 20190219, end: 20190219

REACTIONS (8)
  - Hyperaemia [Recovered/Resolved]
  - Haemodynamic instability [Unknown]
  - Respiratory distress [Recovered/Resolved]
  - Tremor [Recovered/Resolved]
  - Infusion site induration [Recovered/Resolved]
  - Oedema [Recovered/Resolved]
  - Tachycardia [Recovered/Resolved]
  - Pyrexia [Recovered/Resolved]

NARRATIVE: CASE EVENT DATE: 20190219
